FAERS Safety Report 14868452 (Version 1)
Quarter: 2018Q2

REPORT INFORMATION
  Report Type: Spontaneous
  Country: US (occurrence: US)
  Receive Date: 20180509
  Receipt Date: 20180509
  Transmission Date: 20180711
  Serious: No
  Sender: FDA-Public Use
  Company Number: US-B.I. PHARMACEUTICALS,INC./RIDGEFIELD-2018-BI-024118

PATIENT
  Age: 83 Year
  Sex: Female

DRUGS (1)
  1. SPIRIVA [Suspect]
     Active Substance: TIOTROPIUM BROMIDE MONOHYDRATE
     Indication: CHRONIC OBSTRUCTIVE PULMONARY DISEASE
     Dosage: ADMINISTRATION CORRECT? NO ?ACTION(S) TAKEN WITH PRODUCT: DOSE NOT CHANGED
     Route: 055
     Dates: start: 2013

REACTIONS (7)
  - Drug effect incomplete [Not Recovered/Not Resolved]
  - Fall [Recovered/Resolved]
  - Oxygen saturation abnormal [Not Recovered/Not Resolved]
  - Incorrect route of drug administration [Recovered/Resolved]
  - Pain in extremity [Not Recovered/Not Resolved]
  - Upper limb fracture [Not Recovered/Not Resolved]
  - Hypoacusis [Not Recovered/Not Resolved]

NARRATIVE: CASE EVENT DATE: 2013
